FAERS Safety Report 6481064-0 (Version None)
Quarter: 2009Q4

REPORT INFORMATION
  Report Type: 
  Country: None (occurrence: None)
  Receive Date: 20091208
  Receipt Date: 20090819
  Transmission Date: 20100525
  Serious: No
  Sender: FDA-Public Use
  Company Number: US-AMGEN-KDL337480

PATIENT
  Sex: Female

DRUGS (4)
  1. ENBREL [Suspect]
     Indication: PSORIATIC ARTHROPATHY
     Route: 058
     Dates: start: 20060101
  2. ENBREL [Suspect]
     Indication: PSORIASIS
  3. METHOTREXATE [Concomitant]
  4. ANTIBIOTICS [Concomitant]

REACTIONS (8)
  - EYE INFLAMMATION [None]
  - EYE PAIN [None]
  - EYE PRURITUS [None]
  - HYPERSENSITIVITY [None]
  - PSORIATIC ARTHROPATHY [None]
  - RESPIRATORY TRACT INFECTION [None]
  - URTICARIA CHRONIC [None]
  - VISUAL IMPAIRMENT [None]
